FAERS Safety Report 5086829-8 (Version None)
Quarter: 2006Q3

REPORT INFORMATION
  Report Type: 
  Country: None (occurrence: None)
  Receive Date: 20060823
  Receipt Date: 20060817
  Transmission Date: 20061208
  Serious: Yes (Hospitalization, Disabling)
  Sender: FDA-Public Use
  Company Number: US-BOEHRINGER INGELHEIM PHARMACEUTICALS, INC.-2006-DE-04311GD

PATIENT
  Sex: Male

DRUGS (8)
  1. ASPIRIN [Suspect]
     Indication: KAWASAKI'S DISEASE
  2. DIPYRIDAMOLE [Suspect]
     Indication: KAWASAKI'S DISEASE
  3. IMMUNE GLOBULIN INTRAVENOUS (HUMAN) [Suspect]
     Indication: KAWASAKI'S DISEASE
     Route: 042
  4. HEPARIN [Suspect]
     Indication: KAWASAKI'S DISEASE
  5. ANTITHROMBIN III [Suspect]
     Indication: KAWASAKI'S DISEASE
  6. NITROGLYCERIN [Suspect]
     Indication: KAWASAKI'S DISEASE
     Route: 061
  7. METHYLPREDNISOLONE [Suspect]
     Indication: KAWASAKI'S DISEASE
  8. REOPRO [Suspect]
     Indication: KAWASAKI'S DISEASE

REACTIONS (11)
  - DRUG INEFFECTIVE [None]
  - ENTEROBACTER INFECTION [None]
  - FEEDING DISORDER OF INFANCY OR EARLY CHILDHOOD [None]
  - FOOT AMPUTATION [None]
  - GANGRENE [None]
  - HYPERTENSION [None]
  - LEG AMPUTATION [None]
  - LEUKOCYTOSIS [None]
  - PERIPHERAL ISCHAEMIA [None]
  - PYREXIA [None]
  - VENTRICULAR TACHYCARDIA [None]
